FAERS Safety Report 6462141-7 (Version None)
Quarter: 2009Q4

REPORT INFORMATION
  Report Type: 
  Country: None (occurrence: None)
  Receive Date: 20091124
  Receipt Date: 20091110
  Transmission Date: 20100525
  Serious: Yes (Hospitalization)
  Sender: FDA-Public Use
  Company Number: 2009PL000302

PATIENT
  Age: 66 Year
  Sex: Female
  Weight: 56.6996 kg

DRUGS (3)
  1. LOTRONEX [Suspect]
     Indication: IRRITABLE BOWEL SYNDROME
     Dosage: 0.5 MG;BID;PO
     Route: 048
     Dates: start: 20090401, end: 20091018
  2. VAGIFEM [Concomitant]
  3. ESTROGEN PATCH [Concomitant]

REACTIONS (1)
  - COLITIS ISCHAEMIC [None]
